FAERS Safety Report 12969501 (Version 1)
Quarter: 2016Q4

REPORT INFORMATION
  Report Type: Spontaneous
  Country: US (occurrence: US)
  Receive Date: 20161123
  Receipt Date: 20161123
  Transmission Date: 20170207
  Serious: Yes (Other)
  Sender: FDA-Public Use
  Company Number: US-TAKEDA-2016TUS021001

PATIENT
  Age: 23 Year
  Sex: Female

DRUGS (1)
  1. ENTYVIO [Suspect]
     Active Substance: VEDOLIZUMAB
     Indication: PRODUCT USED FOR UNKNOWN INDICATION
     Dosage: UNK
     Route: 042

REACTIONS (8)
  - Feeling abnormal [Unknown]
  - Chills [Unknown]
  - Muscle rigidity [Unknown]
  - Depressed level of consciousness [Unknown]
  - Dizziness [Unknown]
  - Urticaria [Unknown]
  - Pupillary light reflex tests abnormal [Unknown]
  - Limb discomfort [Unknown]
